FAERS Safety Report 4309474-8 (Version None)
Quarter: 2004Q1

REPORT INFORMATION
  Report Type: 
  Country: None (occurrence: None)
  Receive Date: 20040301
  Receipt Date: 20040218
  Transmission Date: 20041129
  Serious: No
  Sender: FDA-Public Use
  Company Number: 2004AP01011

PATIENT
  Age: 47 Year
  Sex: Female
  Weight: 77 kg

DRUGS (6)
  1. ANAPEINE [Suspect]
     Indication: ABDOMINAL HYSTERECTOMY
     Dosage: 100 MG DAILY ED
  2. ANAPEINE [Suspect]
     Indication: EPIDURAL ANAESTHESIA
     Dosage: 100 MG DAILY ED
  3. ATROPINE [Concomitant]
  4. BUTORPHANOL [Concomitant]
  5. PROPOFOL [Concomitant]
  6. VECRONIUM BROMIDE [Concomitant]

REACTIONS (7)
  - ANAESTHETIC COMPLICATION [None]
  - CEREBROSPINAL FLUID LEAKAGE [None]
  - DELAYED RECOVERY FROM ANAESTHESIA [None]
  - HYPOPNOEA [None]
  - IATROGENIC INJURY [None]
  - POST PROCEDURAL PAIN [None]
  - SENSORY LOSS [None]
